FAERS Safety Report 8539167-2 (Version None)
Quarter: 2012Q3

REPORT INFORMATION
  Report Type: 
  Country: None (occurrence: None)
  Receive Date: 20120726
  Receipt Date: 20120716
  Transmission Date: 20120928
  Serious: Yes (Hospitalization)
  Sender: FDA-Public Use
  Company Number: US-NOVOPROD-356336

PATIENT
  Age: 14 Year
  Sex: Male
  Weight: 53.8 kg

DRUGS (1)
  1. NORDITROPIN FLEXPRO [Suspect]
     Indication: GROWTH HORMONE DEFICIENCY
     Dosage: 1.2 MG, QD
     Route: 058
     Dates: start: 20120706

REACTIONS (2)
  - HEADACHE [None]
  - NERVOUS SYSTEM DISORDER [None]
